FAERS Safety Report 17677084 (Version 1)
Quarter: 2020Q2

REPORT INFORMATION
  Report Type: Spontaneous
  Country: US (occurrence: US)
  Receive Date: 20200416
  Receipt Date: 20200416
  Transmission Date: 20200714
  Serious: No
  Sender: FDA-Public Use
  Company Number: US-AERIE-US-2019-000843

PATIENT

DRUGS (1)
  1. RHOPRESSA [Suspect]
     Active Substance: NETARSUDIL MESYLATE
     Indication: OCULAR HYPERTENSION
     Dosage: 2 GTT DROPS (1 DROP IN BOTH EYES), QD
     Route: 047
     Dates: start: 20190927, end: 20191001

REACTIONS (4)
  - Visual acuity reduced [Recovered/Resolved]
  - Nausea [Recovered/Resolved]
  - Conjunctival hyperaemia [Recovered/Resolved]
  - Vision blurred [Not Recovered/Not Resolved]

NARRATIVE: CASE EVENT DATE: 20190929
